FAERS Safety Report 23021092 (Version 1)
Quarter: 2023Q4

REPORT INFORMATION
  Report Type: Report from Study
  Country: BR (occurrence: BR)
  Receive Date: 20231003
  Receipt Date: 20231003
  Transmission Date: 20240110
  Serious: Yes (Other)
  Sender: FDA-Public Use
  Company Number: BR-TAKEDA-2023TUS094024

PATIENT
  Sex: Male

DRUGS (1)
  1. HEMO-8R [Suspect]
     Active Substance: ANTIHEMOPHILIC FACTOR, HUMAN RECOMBINANT
     Indication: Factor VIII deficiency
     Dosage: 1500 INTERNATIONAL UNIT, 3/WEEK
     Route: 042

REACTIONS (4)
  - Haemarthrosis [Unknown]
  - Haemophilic arthropathy [Unknown]
  - Synovitis [Unknown]
  - Joint swelling [Unknown]
